FAERS Safety Report 14172860 (Version 1)
Quarter: 2017Q4

REPORT INFORMATION
  Report Type: Spontaneous
  Country: US (occurrence: None)
  Receive Date: 20171108
  Receipt Date: 20171108
  Transmission Date: 20180321
  Serious: No
  Sender: FDA-Public Use
  Company Number: None

PATIENT
  Age: 62 Year
  Sex: Male

DRUGS (1)
  1. GENVOYA [Suspect]
     Active Substance: COBICISTAT\ELVITEGRAVIR\EMTRICITABINE\TENOFOVIR ALAFENAMIDE FUMARATE
     Indication: ILL-DEFINED DISORDER
     Dosage: 150MG/150MG/200MG/10MG (1 TAB) ONCE DAILY PO
     Route: 048
     Dates: start: 20170214

REACTIONS (2)
  - Weight increased [None]
  - Therapy cessation [None]

NARRATIVE: CASE EVENT DATE: 20170214
